FAERS Safety Report 4513205-6 (Version None)
Quarter: 2004Q4

REPORT INFORMATION
  Report Type: 
  Country: None (occurrence: None)
  Receive Date: 20041124
  Receipt Date: 20041105
  Transmission Date: 20050328
  Serious: Yes (Hospitalization)
  Sender: FDA-Public Use
  Company Number: USA040670059

PATIENT
  Age: 76 Year
  Sex: Female
  Weight: 54 kg

DRUGS (18)
  1. FORTEO [Suspect]
     Indication: OSTEOPOROSIS
  2. HYDROCHLOROTHIAZIDE [Concomitant]
  3. SEREVENT [Concomitant]
  4. AZMACORT [Concomitant]
  5. LEVOXYL [Concomitant]
  6. PREMARIN [Concomitant]
  7. MEDROXYPROGESTERONE [Concomitant]
  8. VIOXX [Concomitant]
  9. DIOVAN [Concomitant]
  10. NORVASC [Concomitant]
  11. CALCITRIOL [Concomitant]
  12. VITAMIN C [Concomitant]
  13. VITAMIN D [Concomitant]
  14. VITAMIN E [Concomitant]
  15. DURAGESIC [Concomitant]
  16. LIDODERM (LIDOCAINE) [Concomitant]
  17. CALCIUM WITH VITAMIN D [Concomitant]
  18. HYDROCHLOROTHIAZIDE W/VALSARTAN [Concomitant]

REACTIONS (12)
  - ACUTE PRERENAL FAILURE [None]
  - BONE PAIN [None]
  - DEHYDRATION [None]
  - DRUG HYPERSENSITIVITY [None]
  - DRUG INTERACTION [None]
  - HYPERCALCAEMIA [None]
  - HYPOAESTHESIA [None]
  - NECK PAIN [None]
  - PHARMACEUTICAL PRODUCT COMPLAINT [None]
  - SCIATICA [None]
  - THYROXINE FREE INCREASED [None]
  - WEIGHT DECREASED [None]
